FAERS Safety Report 18425085 (Version 1)
Quarter: 2020Q4

REPORT INFORMATION
  Report Type: Spontaneous
  Country: GB (occurrence: GB)
  Receive Date: 20201026
  Receipt Date: 20201026
  Transmission Date: 20210114
  Serious: Yes (Death, Other)
  Sender: FDA-Public Use
  Company Number: GB-ACCORD-206266

PATIENT
  Age: 68 Year
  Sex: Female

DRUGS (11)
  1. APIXABAN [Suspect]
     Active Substance: APIXABAN
     Indication: PULMONARY EMBOLISM
     Dosage: INITIALLY
     Route: 048
     Dates: start: 20200923, end: 20200929
  2. CALCICHEW D3 [Concomitant]
     Active Substance: CALCIUM\CHOLECALCIFEROL
  3. RIFAXIMIN. [Concomitant]
     Active Substance: RIFAXIMIN
  4. ENOXAPARIN [Concomitant]
     Active Substance: ENOXAPARIN
  5. POTASSIUM [Concomitant]
     Active Substance: POTASSIUM
  6. FOLIC ACID. [Concomitant]
     Active Substance: FOLIC ACID
  7. PHYTOMENADIONE [Concomitant]
     Active Substance: PHYTONADIONE
  8. THIAMINE. [Concomitant]
     Active Substance: THIAMINE
  9. PIPERACILLIN. [Concomitant]
     Active Substance: PIPERACILLIN SODIUM
  10. OMEPRAZOLE. [Concomitant]
     Active Substance: OMEPRAZOLE
  11. ALENDRONATE SODIUM/ALENDRONIC ACID [Concomitant]
     Active Substance: ALENDRONATE SODIUM

REACTIONS (3)
  - Seizure [Unknown]
  - Haemorrhage intracranial [Fatal]
  - Fall [Unknown]

NARRATIVE: CASE EVENT DATE: 20200930
